FAERS Safety Report 25526964 (Version 1)
Quarter: 2025Q3

REPORT INFORMATION
  Report Type: Spontaneous
  Country: CN (occurrence: CN)
  Receive Date: 20250707
  Receipt Date: 20250707
  Transmission Date: 20251021
  Serious: Yes (Hospitalization)
  Sender: ABBVIE
  Company Number: CN-ABBVIE-6357707

PATIENT
  Age: 62 Year
  Sex: Female
  Weight: 62 kg

DRUGS (4)
  1. VENCLEXTA [Suspect]
     Active Substance: VENETOCLAX
     Indication: Acute myeloid leukaemia
     Dosage: 200 MILLIGRAM
     Route: 048
     Dates: start: 20250606, end: 20250606
  2. VENCLEXTA [Suspect]
     Active Substance: VENETOCLAX
     Indication: Acute myeloid leukaemia
     Dosage: 400 MILLIGRAM
     Route: 048
     Dates: start: 20250607, end: 20250702
  3. VENCLEXTA [Suspect]
     Active Substance: VENETOCLAX
     Indication: Acute myeloid leukaemia
     Dosage: 100 MILLIGRAM
     Route: 048
     Dates: start: 20250605, end: 20250605
  4. AZACITIDINE [Suspect]
     Active Substance: AZACITIDINE
     Indication: Acute myeloid leukaemia
     Dosage: 50 MILLIGRAM
     Route: 058
     Dates: start: 20250605, end: 20250611

REACTIONS (3)
  - Granulocytopenia [Recovering/Resolving]
  - Myelosuppression [Unknown]
  - Platelet count decreased [Unknown]

NARRATIVE: CASE EVENT DATE: 20250619
